FAERS Safety Report 20029974 (Version 9)
Quarter: 2023Q4

REPORT INFORMATION
  Report Type: Spontaneous
  Country: US (occurrence: US)
  Receive Date: 20211103
  Receipt Date: 20231024
  Transmission Date: 20240110
  Serious: Yes (Hospitalization, Disabling, Other)
  Sender: FDA-Public Use
  Company Number: US-PFIZER INC-2021355328

PATIENT
  Age: 68 Year
  Sex: Male

DRUGS (23)
  1. XELJANZ XR [Suspect]
     Active Substance: TOFACITINIB CITRATE
     Indication: Arthritis
     Dosage: 11 MG, 1X/DAY
  2. XELJANZ XR [Suspect]
     Active Substance: TOFACITINIB CITRATE
     Indication: Rheumatoid arthritis
  3. VASCEPA [Concomitant]
     Active Substance: ICOSAPENT ETHYL
     Indication: Blood cholesterol
     Dosage: 2 G, 2X/DAY
  4. REPATHA [Concomitant]
     Active Substance: EVOLOCUMAB
     Indication: Blood cholesterol
     Dosage: UNK
  5. ALBUTEROL SULFATE [Concomitant]
     Active Substance: ALBUTEROL SULFATE
     Indication: Dyspnoea
     Dosage: UNK
  6. ALBUTEROL SULFATE [Concomitant]
     Active Substance: ALBUTEROL SULFATE
     Indication: Chronic obstructive pulmonary disease
  7. ALBUTEROL SULFATE [Concomitant]
     Active Substance: ALBUTEROL SULFATE
     Indication: Asthma
  8. GABAPENTIN [Concomitant]
     Active Substance: GABAPENTIN
     Dosage: 400 MG, 4X/DAY
  9. HYDROCODONE [Concomitant]
     Active Substance: HYDROCODONE
     Dosage: 10 MG, 4X/DAY (HYDROCODONE 325, 10 MILLIGRAMS 4 TIMES A DAY)
  10. TIZANIDINE [Concomitant]
     Active Substance: TIZANIDINE
     Indication: Hypotonia
     Dosage: 10 MG, 1X/DAY (10 MILLIGRAMS NIGHTLY)
  11. LANTUS [Concomitant]
     Active Substance: INSULIN GLARGINE
     Dosage: 38 ML, 1X/DAY
  12. HUMALOG [Concomitant]
     Active Substance: INSULIN LISPRO
     Dosage: 4 MG, 3X/DAY (ONLY TAKE 4 MILLIGRAMS BEFORE MEAL SO 3 TIMES A DAY)
  13. OXYBUTYNIN [Concomitant]
     Active Substance: OXYBUTYNIN
     Dosage: 15 MG, 1X/DAY (15 MILLIGRAM TABLET ONCE A DAY)
  14. BUPROPION [Concomitant]
     Active Substance: BUPROPION
     Dosage: 150 MG (150 MILLIGRAM CAPSULE ONCE OR TWICE A DAY)
  15. OFLOXACIN [Concomitant]
     Active Substance: OFLOXACIN
     Dosage: 2 DROP, 2X/DAY
  16. MECLIZINE [Concomitant]
     Active Substance: MECLIZINE HYDROCHLORIDE
     Dosage: 12.5 MG
  17. ASPIRIN [Concomitant]
     Active Substance: ASPIRIN
     Indication: Cardiac disorder
     Dosage: 81 MG, 1X/DAY
  18. TYLENOL [Concomitant]
     Active Substance: ACETAMINOPHEN
     Dosage: UNK
  19. BUSPIRONE [Concomitant]
     Active Substance: BUSPIRONE HYDROCHLORIDE
     Dosage: UNK
  20. JARDIANCE [Concomitant]
     Active Substance: EMPAGLIFLOZIN
     Dosage: UNK
  21. ARAVA [Concomitant]
     Active Substance: LEFLUNOMIDE
     Dosage: 20 MG, 1X/DAY
  22. PROPRANOLOL [Concomitant]
     Active Substance: PROPRANOLOL HYDROCHLORIDE
     Dosage: 60 MG, 1X/DAY
  23. PANTOPRAZOLE [Concomitant]
     Active Substance: PANTOPRAZOLE
     Dosage: UNK

REACTIONS (17)
  - Hand deformity [Not Recovered/Not Resolved]
  - Pain in extremity [Not Recovered/Not Resolved]
  - Condition aggravated [Unknown]
  - Avian influenza [Unknown]
  - Pain [Not Recovered/Not Resolved]
  - Therapeutic product effect incomplete [Unknown]
  - Sinusitis [Unknown]
  - Eating disorder [Unknown]
  - Limb discomfort [Unknown]
  - Sensory disturbance [Unknown]
  - Fatigue [Unknown]
  - Pancreatic disorder [Unknown]
  - Gastrointestinal disorder [Unknown]
  - Ear infection [Unknown]
  - Visual impairment [Unknown]
  - Urine abnormality [Unknown]
  - Migraine [Unknown]
